FAERS Safety Report 18465769 (Version 1)
Quarter: 2020Q4

REPORT INFORMATION
  Report Type: Report from Study
  Country: TR (occurrence: TR)
  Receive Date: 20201104
  Receipt Date: 20201104
  Transmission Date: 20210114
  Serious: Yes (Death, Other)
  Sender: FDA-Public Use
  Company Number: TR-TAKEDA-2020TUS007841

PATIENT
  Age: 59 Year
  Sex: Male
  Weight: 87 kg

DRUGS (1)
  1. BRIGATINIB [Suspect]
     Active Substance: BRIGATINIB
     Indication: NON-SMALL CELL LUNG CANCER METASTATIC
     Dosage: UNK
     Route: 065
     Dates: start: 20181226, end: 20200116

REACTIONS (1)
  - Death [Fatal]

NARRATIVE: CASE EVENT DATE: 20200202
